FAERS Safety Report 12422756 (Version 1)
Quarter: 2016Q2

REPORT INFORMATION
  Report Type: Report from Study
  Country: CN (occurrence: CN)
  Receive Date: 20160601
  Receipt Date: 20160601
  Transmission Date: 20160815
  Serious: Yes (Other)
  Sender: FDA-Public Use
  Company Number: PHHY2016CN072330

PATIENT
  Age: 31 Year
  Sex: Male

DRUGS (38)
  1. FUROSEMIDE. [Concomitant]
     Active Substance: FUROSEMIDE
     Indication: PROPHYLAXIS
     Dosage: 40 MG, Q8H
     Route: 042
     Dates: start: 20160320, end: 20160326
  2. SODIUM BICARBONATE. [Concomitant]
     Active Substance: SODIUM BICARBONATE
     Dosage: 1 G, TID
     Route: 048
     Dates: start: 20160408, end: 20160415
  3. PREDNISONE ACETATE [Concomitant]
     Active Substance: PREDNISONE ACETATE
     Dosage: 20 MG, QD
     Route: 048
     Dates: start: 20160311, end: 20160412
  4. MYFORTIC [Suspect]
     Active Substance: MYCOPHENOLATE SODIUM
     Dosage: 1440 MG, QD
     Route: 065
     Dates: start: 20160309, end: 20160314
  5. MYFORTIC [Suspect]
     Active Substance: MYCOPHENOLATE SODIUM
     Dosage: 1080 MG, QD
     Route: 065
     Dates: start: 20160324, end: 20160415
  6. MYFORTIC [Suspect]
     Active Substance: MYCOPHENOLATE SODIUM
     Dosage: 720 MG, QD
     Route: 065
     Dates: start: 20160317, end: 20160324
  7. TACROLIMUS. [Suspect]
     Active Substance: TACROLIMUS
     Dosage: 7 MG, QD
     Route: 065
     Dates: start: 20160325, end: 20160330
  8. PAPAVERINE HYDROCHLORIDE. [Concomitant]
     Active Substance: PAPAVERINE HYDROCHLORIDE
     Indication: POLYURIA
     Dosage: 60 MG, Q12H
     Route: 042
     Dates: start: 20160309, end: 20160327
  9. HEPATITIS B IMMUNE GLOBULIN [Concomitant]
     Active Substance: HUMAN HEPATITIS B VIRUS IMMUNE GLOBULIN
     Dosage: 400 IU, QD
     Route: 030
     Dates: start: 20160309, end: 20160313
  10. PREDNISONE ACETATE [Concomitant]
     Active Substance: PREDNISONE ACETATE
     Dosage: 15 MG, QD
     Route: 048
     Dates: start: 20160412, end: 20160414
  11. DILTIAZEM HYDROCHLORIDE. [Concomitant]
     Active Substance: DILTIAZEM HYDROCHLORIDE
     Indication: HYPERTENSION
     Dosage: 90 MG, BID
     Route: 048
     Dates: start: 20160314, end: 20160403
  12. DILTIAZEM HYDROCHLORIDE. [Concomitant]
     Active Substance: DILTIAZEM HYDROCHLORIDE
     Dosage: 90 MG, BID
     Route: 048
     Dates: start: 20160403, end: 20160415
  13. NIFEDIPINE. [Concomitant]
     Active Substance: NIFEDIPINE
     Indication: HYPERTENSION
     Dosage: 30 MG, QD
     Route: 048
     Dates: start: 20160314, end: 20160319
  14. PREDNISONE ACETATE [Concomitant]
     Active Substance: PREDNISONE ACETATE
     Indication: PROPHYLAXIS
     Dosage: 10 MG, QD
     Route: 048
     Dates: start: 20160414, end: 20160415
  15. PHENTOLAMINE [Concomitant]
     Active Substance: PHENTOLAMINE
     Indication: POLYURIA
     Dosage: 20 MG, Q12H
     Route: 042
     Dates: start: 20160309, end: 20160327
  16. OMEPRAZOLE. [Concomitant]
     Active Substance: OMEPRAZOLE
     Indication: PROPHYLAXIS
     Dosage: 40 MG, Q12H
     Route: 042
     Dates: start: 20160309, end: 20160330
  17. FUROSEMIDE. [Concomitant]
     Active Substance: FUROSEMIDE
     Dosage: 40 MG, Q8H
     Route: 042
     Dates: start: 20160326, end: 20160326
  18. FUROSEMIDE. [Concomitant]
     Active Substance: FUROSEMIDE
     Dosage: 40 MG, Q8H
     Route: 042
     Dates: start: 20160309, end: 20160320
  19. HEPATITIS B IMMUNE GLOBULIN [Concomitant]
     Active Substance: HUMAN HEPATITIS B VIRUS IMMUNE GLOBULIN
     Indication: PROPHYLAXIS
     Dosage: 400 IU, BIW3
     Route: 030
     Dates: start: 20160313, end: 20160329
  20. GRAPEFRUIT JUICE [Concomitant]
     Active Substance: GRAPEFRUIT JUICE
     Indication: PRODUCT USED FOR UNKNOWN INDICATION
     Dosage: 50 ML, BID
     Route: 048
     Dates: start: 20160411, end: 20160415
  21. TORASEMIDE [Concomitant]
     Active Substance: TORSEMIDE
     Dosage: 40 MG, Q12H
     Route: 042
     Dates: start: 20160309, end: 20160312
  22. CARVEDILOL. [Concomitant]
     Active Substance: CARVEDILOL
     Indication: HYPERTENSION
     Dosage: 20 MG, BID
     Route: 048
     Dates: start: 20160311, end: 20160322
  23. MYFORTIC [Suspect]
     Active Substance: MYCOPHENOLATE SODIUM
     Indication: RENAL TRANSPLANT
     Dosage: 720 MG, QD
     Route: 065
     Dates: start: 20160314, end: 20160317
  24. TACROLIMUS. [Suspect]
     Active Substance: TACROLIMUS
     Indication: PRODUCT USED FOR UNKNOWN INDICATION
     Dosage: 6 MG, QD
     Route: 065
     Dates: start: 20160309, end: 20160314
  25. VALSARTAN AND HYDROCHLOROTHIAZIDE [Concomitant]
     Active Substance: HYDROCHLOROTHIAZIDE\VALSARTAN
  26. PIPERACILLIN AND TAZOBACTAM [Concomitant]
     Active Substance: PIPERACILLIN SODIUM\TAZOBACTAM SODIUM
     Indication: INFECTION PROPHYLAXIS
     Dosage: 2.5 G, Q12H
     Route: 042
     Dates: start: 20160309, end: 20160330
  27. TORASEMIDE [Concomitant]
     Active Substance: TORSEMIDE
     Dosage: 40 MG, Q12H
     Route: 042
     Dates: start: 20160312, end: 20160330
  28. AMBROXOL HYDROCHLORIDE [Concomitant]
     Active Substance: AMBROXOL HYDROCHLORIDE
     Indication: PROPHYLAXIS
     Dosage: 30 MG, BID
     Route: 055
     Dates: start: 20160309, end: 20160324
  29. TORASEMIDE [Concomitant]
     Active Substance: TORSEMIDE
     Indication: POLYURIA
     Dosage: 20 MG, QD
     Route: 042
     Dates: start: 20160330, end: 20160403
  30. LANSOPRAZOLE. [Concomitant]
     Active Substance: LANSOPRAZOLE
     Indication: PROPHYLAXIS
     Dosage: 30 MG, BID
     Route: 042
     Dates: start: 20160331, end: 20160405
  31. MYFORTIC [Suspect]
     Active Substance: MYCOPHENOLATE SODIUM
     Dosage: 1080 MG, QD
     Route: 065
     Dates: start: 20160317, end: 20160324
  32. BASILIXIMAB [Suspect]
     Active Substance: BASILIXIMAB
     Indication: PRODUCT USED FOR UNKNOWN INDICATION
     Dosage: 20 MG, QD
     Route: 065
     Dates: start: 20160308, end: 20160308
  33. NIFEDIPINE. [Concomitant]
     Active Substance: NIFEDIPINE
     Dosage: 60 MG, QD
     Route: 048
     Dates: start: 20160319, end: 20160322
  34. TACROLIMUS. [Suspect]
     Active Substance: TACROLIMUS
     Dosage: 5 MG, QD
     Route: 065
     Dates: start: 20160331, end: 20160404
  35. TACROLIMUS. [Suspect]
     Active Substance: TACROLIMUS
     Dosage: 7 MG, QD
     Route: 065
     Dates: start: 20160404, end: 20160415
  36. TACROLIMUS. [Suspect]
     Active Substance: TACROLIMUS
     Dosage: 8 MG, QD
     Route: 065
     Dates: start: 20160314, end: 20160325
  37. SODIUM BICARBONATE. [Concomitant]
     Active Substance: SODIUM BICARBONATE
     Indication: ANTACID THERAPY
     Dosage: 1 G, TID
     Route: 048
     Dates: start: 20160324, end: 20160326
  38. AMLODIPINE [Concomitant]
     Active Substance: AMLODIPINE BESYLATE
     Indication: HYPERTENSION
     Dosage: 2.5 MG, QD
     Route: 048
     Dates: start: 20160311, end: 20160314

REACTIONS (7)
  - Blood glucose increased [Recovered/Resolved]
  - Blood urea increased [Unknown]
  - Lymphocyte count decreased [Unknown]
  - Neutrophil count increased [Unknown]
  - White blood cell count abnormal [Unknown]
  - Blood creatinine increased [Unknown]
  - Haemoglobin decreased [Unknown]

NARRATIVE: CASE EVENT DATE: 20160308
